FAERS Safety Report 5243987-X (Version None)
Quarter: 2007Q1

REPORT INFORMATION
  Report Type: 
  Country: None (occurrence: None)
  Receive Date: 20070220
  Receipt Date: 20070220
  Transmission Date: 20070707
  Serious: No
  Sender: FDA-Public Use
  Company Number: None

PATIENT
  Age: 68 Year
  Sex: Male

DRUGS (1)
  1. RITUXIMAB [Suspect]
     Indication: B-CELL LYMPHOMA
     Dosage: IV
     Route: 042

REACTIONS (5)
  - BLOOD PRESSURE SYSTOLIC DECREASED [None]
  - CHILLS [None]
  - NO THERAPEUTIC RESPONSE [None]
  - TACHYCARDIA [None]
  - VENTRICULAR EXTRASYSTOLES [None]
